FAERS Safety Report 22651360 (Version 1)
Quarter: 2023Q2

REPORT INFORMATION
  Report Type: Spontaneous
  Country: FR (occurrence: None)
  Receive Date: 20230628
  Receipt Date: 20230628
  Transmission Date: 20230722
  Serious: Yes (Other)
  Sender: FDA-Public Use
  Company Number: 2023A142755

PATIENT
  Age: 64 Year
  Sex: Female

DRUGS (2)
  1. FULVESTRANT [Suspect]
     Active Substance: FULVESTRANT
     Indication: Breast cancer
     Dosage: 500.0MG UNKNOWN
     Route: 030
     Dates: start: 20230420
  2. PALBOCICLIB [Suspect]
     Active Substance: PALBOCICLIB
     Indication: Breast cancer
     Dosage: 21D/28
     Route: 048
     Dates: start: 20230420

REACTIONS (1)
  - Mesenteric panniculitis [Not Recovered/Not Resolved]

NARRATIVE: CASE EVENT DATE: 20221027
